FAERS Safety Report 22961127 (Version 9)
Quarter: 2025Q1

REPORT INFORMATION
  Report Type: Report from Study
  Country: US (occurrence: US)
  Receive Date: 20230920
  Receipt Date: 20250206
  Transmission Date: 20250409
  Serious: Yes (Other)
  Sender: NOVARTIS
  Company Number: US-002147023-NVSC2023US200967

PATIENT
  Age: 74 Year
  Sex: Female

DRUGS (3)
  1. KESIMPTA [Suspect]
     Active Substance: OFATUMUMAB
     Indication: Relapsing multiple sclerosis
     Dosage: 20 MG, QMO
     Route: 058
     Dates: start: 20230810
  2. KESIMPTA [Suspect]
     Active Substance: OFATUMUMAB
     Indication: Multiple sclerosis
     Dosage: UNK, QW
     Route: 065
     Dates: start: 20230817
  3. KESIMPTA [Suspect]
     Active Substance: OFATUMUMAB
     Dosage: UNK, QW
     Route: 058
     Dates: start: 20230831

REACTIONS (11)
  - Cataract [Unknown]
  - Optic neuritis [Unknown]
  - Vision blurred [Unknown]
  - Immunosuppression [Unknown]
  - Emotional distress [Unknown]
  - Astigmatism [Unknown]
  - Pain [Unknown]
  - Product dispensing issue [Unknown]
  - Temperature intolerance [Unknown]
  - Off label use [Unknown]
  - Anxiety [Unknown]

NARRATIVE: CASE EVENT DATE: 20230914
